FAERS Safety Report 10361744 (Version 3)
Quarter: 2014Q3

REPORT INFORMATION
  Report Type: Spontaneous
  Country: US (occurrence: US)
  Receive Date: 20140805
  Receipt Date: 20140821
  Transmission Date: 20150326
  Serious: No
  Sender: FDA-Public Use
  Company Number: US-UCBSA-113433

PATIENT
  Sex: Male
  Weight: 74.83 kg

DRUGS (3)
  1. PHENOBARBITAL. [Concomitant]
     Active Substance: PHENOBARBITAL
     Dosage: 64.8 MG, 2X/DAY (BID)
  2. JUNETE [Concomitant]
     Dosage: 50-1000, ONCE DAILY (QD)
  3. KEPPRA XR [Suspect]
     Active Substance: LEVETIRACETAM
     Indication: CONVULSION
     Dosage: 1500 MG, 2X/DAY (BID), 750 MG 2 TABS IN AM AND 2 TABS IN PM

REACTIONS (3)
  - Inappropriate schedule of drug administration [Unknown]
  - Blood glucose increased [Recovering/Resolving]
  - Convulsion [Not Recovered/Not Resolved]

NARRATIVE: CASE EVENT DATE: 2014
